FAERS Safety Report 10042786 (Version 1)
Quarter: 2014Q1

REPORT INFORMATION
  Report Type: Spontaneous
  Country: US (occurrence: US)
  Receive Date: 20140327
  Receipt Date: 20140327
  Transmission Date: 20141002
  Serious: Yes (Death, Other)
  Sender: FDA-Public Use
  Company Number: US-TEVA-471510USA

PATIENT
  Age: 41 Year
  Sex: Male

DRUGS (6)
  1. AZITHROMYCIN [Suspect]
     Indication: URETHRITIS
     Route: 065
  2. CEFTRIAXONE [Suspect]
     Indication: URETHRITIS
     Route: 065
  3. TENOFOVIR [Suspect]
     Indication: HIV INFECTION
     Route: 065
  4. DIDANOSINE [Suspect]
     Indication: HIV INFECTION
     Route: 065
  5. ATAZANAVIR [Suspect]
     Indication: HIV INFECTION
     Route: 065
  6. RITONAVIR [Suspect]
     Indication: HIV INFECTION
     Route: 065

REACTIONS (7)
  - Death [Fatal]
  - Vanishing bile duct syndrome [Unknown]
  - Drug-induced liver injury [Unknown]
  - Pneumococcal sepsis [Unknown]
  - Intussusception [Unknown]
  - Renal failure [Unknown]
  - Hodgkin^s disease [Unknown]
